FAERS Safety Report 7623610 (Version 5)
Quarter: 2013Q2

REPORT INFORMATION
  Report Type: Report from Study
  Country: DE (occurrence: DE)
  Receive Date: 20101011
  Receipt Date: 20130403
  Transmission Date: 20140414
  Serious: Yes (Hospitalization)
  Sender: FDA-Public Use
  Company Number: DE-ROCHE-732008

PATIENT
  Age: 70 Year
  Sex: Female
  Weight: 61 kg

DRUGS (16)
  1. BEVACIZUMAB [Suspect]
     Indication: NON-SMALL CELL LUNG CANCER
     Dosage: FORM: INFUSION, LAST DOSE PRIOR TO SAE: 11 OCTOBER 2010.
     Route: 042
     Dates: start: 20100512, end: 20101028
  2. PEMETREXED [Suspect]
     Indication: NON-SMALL CELL LUNG CANCER
     Dosage: FORM: INFUSION, LAST DOSE PRIOR TO SAE: 11 OCTOBER 2010.
     Route: 042
     Dates: start: 20100510
  3. PEMETREXED [Suspect]
     Dosage: INFUSION. LAST ODSE PRIOR TO SAE 21 SEP 2010
     Route: 042
     Dates: start: 20100512
  4. PEMETREXED [Suspect]
     Dosage: FORM: INFUSION, LAST DOSE PRIOR TO SAE: 11 OCTOBER 2010.
     Route: 042
     Dates: start: 20100521, end: 20101028
  5. FORTECORTIN [Concomitant]
     Dosage: TDD: 1DF/D.
     Route: 065
  6. FORTECORTIN [Concomitant]
     Route: 065
  7. FOLSAN [Concomitant]
     Dosage: TDD: 1DF/D
     Route: 065
  8. FORTECORTIN [Concomitant]
     Dosage: TDD: 1 DF/D.
     Route: 065
     Dates: start: 20100512, end: 20101011
  9. DOXYCYCLINE [Concomitant]
     Route: 065
  10. SEDOTUSSIN (GERMANY) [Concomitant]
     Route: 065
  11. IBUHEXAL [Concomitant]
     Route: 065
  12. PANTOPRAZOLE [Concomitant]
     Route: 065
  13. RIVOTRIL [Concomitant]
     Route: 065
  14. FUROSEMIDE [Concomitant]
     Route: 065
  15. DEXAMETHASONE [Concomitant]
  16. KEVATRIL [Concomitant]
     Dosage: 1 AMPULE
     Route: 065
     Dates: start: 20100512

REACTIONS (6)
  - General physical health deterioration [Not Recovered/Not Resolved]
  - General physical health deterioration [Not Recovered/Not Resolved]
  - Decreased appetite [Not Recovered/Not Resolved]
  - Weight decreased [Recovered/Resolved]
  - Fatigue [Recovered/Resolved]
  - Dehydration [Recovered/Resolved]
